FAERS Safety Report 7553585-0 (Version None)
Quarter: 2011Q2

REPORT INFORMATION
  Report Type: 
  Country: None (occurrence: None)
  Receive Date: 20110617
  Receipt Date: 20110608
  Transmission Date: 20111010
  Serious: Yes (Other)
  Sender: FDA-Public Use
  Company Number: US-JNJFOC-20110407058

PATIENT
  Sex: Female
  Weight: 104.33 kg

DRUGS (2)
  1. DOXORUBICIN HCL [Suspect]
     Indication: OVARIAN CANCER
     Route: 042
     Dates: start: 20110101
  2. SYNTHROID [Concomitant]
     Indication: HYPOTHYROIDISM
     Route: 048

REACTIONS (8)
  - SKIN DISCOLOURATION [None]
  - CARBOHYDRATE ANTIGEN 125 INCREASED [None]
  - EJECTION FRACTION DECREASED [None]
  - DECREASED IMMUNE RESPONSIVENESS [None]
  - LARYNGITIS [None]
  - PHARYNGITIS [None]
  - RASH [None]
  - ABDOMINAL PAIN [None]
